FAERS Safety Report 16926008 (Version 1)
Quarter: 2019Q4

REPORT INFORMATION
  Report Type: Spontaneous
  Country: RO (occurrence: RO)
  Receive Date: 20191016
  Receipt Date: 20191016
  Transmission Date: 20200122
  Serious: Yes (Other)
  Sender: FDA-Public Use
  Company Number: RO-SHIRE-RO201933083

PATIENT

DRUGS (1)
  1. 422 (ANAGRELIDE) [Suspect]
     Active Substance: ANAGRELIDE
     Indication: ESSENTIAL THROMBOCYTHAEMIA
     Dosage: SINCE AN UNKNOWN DATE, AT AN UNKNOWN DOSAGE.
     Route: 048

REACTIONS (2)
  - Plasma cell myeloma recurrent [Unknown]
  - Myelofibrosis [Unknown]

NARRATIVE: CASE EVENT DATE: 2019
